FAERS Safety Report 7693234-4 (Version None)
Quarter: 2011Q3

REPORT INFORMATION
  Report Type: 
  Country: None (occurrence: None)
  Receive Date: 20110816
  Receipt Date: 20110811
  Transmission Date: 20111222
  Serious: Yes (Other)
  Sender: FDA-Public Use
  Company Number: JHP201100385

PATIENT
  Age: 38 Year
  Sex: Male

DRUGS (1)
  1. EPINEPHRINE [Suspect]
     Indication: HAEMOSTASIS
     Dosage: 2 ML, 0.2% AROUND ULCER, INJECTION

REACTIONS (4)
  - ANAEMIA [None]
  - HYPOTENSION [None]
  - POST PROCEDURAL COMPLICATION [None]
  - INTESTINAL HAEMATOMA [None]
